FAERS Safety Report 19118844 (Version 1)
Quarter: 2021Q2

REPORT INFORMATION
  Report Type: Spontaneous
  Country: IT (occurrence: IT)
  Receive Date: 20210410
  Receipt Date: 20210410
  Transmission Date: 20210717
  Serious: No
  Sender: FDA-Public Use
  Company Number: IT-LUPIN PHARMACEUTICALS INC.-2021-04426

PATIENT
  Age: 76 Year
  Sex: Male

DRUGS (2)
  1. AZACITIDINE. [Suspect]
     Active Substance: AZACITIDINE
     Indication: NPM1 GENE MUTATION
     Dosage: UNK
     Route: 065
  2. VENETOCLAX. [Suspect]
     Active Substance: VENETOCLAX
     Indication: NPM1 GENE MUTATION
     Dosage: UNK
     Route: 065

REACTIONS (1)
  - Off label use [Unknown]
